FAERS Safety Report 6949295 (Version 31)
Quarter: 2014Q3

REPORT INFORMATION
  Report Type: Spontaneous
  Country: US (occurrence: US)
  Receive Date: 20090324
  Receipt Date: 20140805
  Transmission Date: 20150326
  Serious: Yes (Other)
  Sender: FDA-Public Use
  Company Number: PHEH2009US02711

PATIENT
  Sex: Female
  Weight: 78.46 kg

DRUGS (23)
  1. AREDIA [Suspect]
     Active Substance: PAMIDRONATE DISODIUM
     Indication: SYSTEMIC MASTOCYTOSIS
  2. FLOMAX [Concomitant]
     Active Substance: TAMSULOSIN HYDROCHLORIDE
  3. DILANTIN [Concomitant]
     Active Substance: PHENYTOIN
     Dosage: 130 MG, BID
  4. ROCEPHIN [Concomitant]
     Active Substance: CEFTRIAXONE SODIUM
  5. ZELNORM [Concomitant]
     Active Substance: TEGASEROD MALEATE
  6. ALLEGRA [Concomitant]
     Active Substance: FEXOFENADINE HYDROCHLORIDE
  7. GLEEVEC [Concomitant]
     Active Substance: IMATINIB MESYLATE
  8. LYRICA [Concomitant]
     Active Substance: PREGABALIN
  9. KADIAN ^KNOLL^ [Concomitant]
  10. SINGULAIR [Concomitant]
     Active Substance: MONTELUKAST SODIUM
  11. PREVACID [Concomitant]
     Active Substance: LANSOPRAZOLE
     Dosage: 15 MG, QD
  12. DARVOCET-N 100 [Concomitant]
     Active Substance: ACETAMINOPHEN\PROPOXYPHENE NAPSYLATE
     Dosage: 2 DF, Q6H
  13. COMPAZINE [Concomitant]
     Active Substance: PROCHLORPERAZINE MALEATE
  14. CIPROFLOXACIN. [Concomitant]
     Active Substance: CIPROFLOXACIN
     Dosage: 500 MG, BID
  15. AREDIA [Suspect]
     Active Substance: PAMIDRONATE DISODIUM
     Indication: OSTEOPOROSIS
     Dosage: 90 MG, QMO
     Route: 041
     Dates: start: 1995, end: 2001
  16. ESTROGEN NOS [Concomitant]
     Active Substance: ESTROGENS
     Dosage: 1 MG, QD
     Route: 048
  17. ZOMETA [Suspect]
     Active Substance: ZOLEDRONIC ACID
     Indication: SYSTEMIC MASTOCYTOSIS
     Dosage: 4 MG, QMO
     Route: 042
     Dates: start: 199704, end: 20040915
  18. AMITRIPTYLINE [Concomitant]
     Active Substance: AMITRIPTYLINE
     Dosage: 150 MG, QD
  19. INTERFERON NOS [Concomitant]
     Active Substance: INTERFERON
  20. CYMBALTA [Concomitant]
     Active Substance: DULOXETINE HYDROCHLORIDE
  21. DILAUDID [Concomitant]
     Active Substance: HYDROMORPHONE HYDROCHLORIDE
  22. ACIPHEX [Concomitant]
     Active Substance: RABEPRAZOLE SODIUM
     Dosage: 20 MG
  23. COUMADIN [Concomitant]
     Active Substance: WARFARIN SODIUM
     Dosage: 5 MG, QD

REACTIONS (183)
  - Bone loss [Unknown]
  - Obstructive uropathy [Unknown]
  - Syncope [Unknown]
  - Pancytopenia [Unknown]
  - Dyspnoea [Unknown]
  - Constipation [Unknown]
  - Dysphagia [Unknown]
  - Foot fracture [Unknown]
  - Depression [Unknown]
  - Aortic calcification [Unknown]
  - Rib fracture [Unknown]
  - Gastritis erosive [Unknown]
  - Weight decreased [Unknown]
  - Oral disorder [Unknown]
  - Neuralgia [Unknown]
  - Exposed bone in jaw [Unknown]
  - Tooth loss [Unknown]
  - Pain in jaw [Unknown]
  - Cervical radiculopathy [Unknown]
  - Scoliosis [Unknown]
  - Aortic arteriosclerosis [Unknown]
  - Pulmonary congestion [Unknown]
  - Osteopenia [Unknown]
  - Hiatus hernia [Unknown]
  - Neuropathy peripheral [Unknown]
  - Staphylococcal infection [Unknown]
  - Dehydration [Unknown]
  - Loose tooth [Unknown]
  - Tooth erosion [Unknown]
  - Gingival erosion [Unknown]
  - Joint swelling [Unknown]
  - Stress [Unknown]
  - Intervertebral disc space narrowing [Unknown]
  - Urticaria pigmentosa [Unknown]
  - Mucosal ulceration [Unknown]
  - Respiratory depression [Unknown]
  - Arthralgia [Unknown]
  - Piriformis syndrome [Unknown]
  - Ear pain [Unknown]
  - Venous angioma of brain [Unknown]
  - Dyspepsia [Unknown]
  - Pain in extremity [Unknown]
  - Melanocytic naevus [Unknown]
  - Pain [Unknown]
  - Dental caries [Unknown]
  - Otitis media chronic [Unknown]
  - Pruritus [Unknown]
  - Eustachian tube dysfunction [Unknown]
  - Deep vein thrombosis [Unknown]
  - Fibroma [Unknown]
  - Osteonecrosis [Unknown]
  - Anaemia macrocytic [Unknown]
  - Cholelithiasis [Unknown]
  - Chest pain [Unknown]
  - Splenomegaly [Unknown]
  - Arrhythmia [Unknown]
  - Soft tissue mass [Unknown]
  - Tibia fracture [Unknown]
  - Bladder discomfort [Unknown]
  - Spinal deformity [Unknown]
  - Blindness [Unknown]
  - Osteonecrosis of jaw [Unknown]
  - Dry mouth [Unknown]
  - Convulsion [Unknown]
  - Cholesteatoma [Unknown]
  - Endometriosis [Unknown]
  - Thrombophlebitis superficial [Unknown]
  - Pneumonia [Unknown]
  - Pleural effusion [Unknown]
  - Dysuria [Unknown]
  - Nephrolithiasis [Unknown]
  - Lymphadenopathy [Unknown]
  - Osteomyelitis [Unknown]
  - Urinary retention [Unknown]
  - Spinal osteoarthritis [Unknown]
  - Jaundice [Unknown]
  - Gastritis [Unknown]
  - Rhinitis allergic [Unknown]
  - Fall [Unknown]
  - Respiratory arrest [Unknown]
  - Urinary hesitation [Unknown]
  - Lipoma [Unknown]
  - Actinomycosis [Unknown]
  - Headache [Unknown]
  - Spinal pain [Unknown]
  - Brain mass [Unknown]
  - Road traffic accident [Unknown]
  - Lipohypertrophy [Unknown]
  - Radicular pain [Unknown]
  - Bronchiolitis [Unknown]
  - Musculoskeletal chest pain [Unknown]
  - Deformity [Unknown]
  - Gingival abscess [Unknown]
  - Primary sequestrum [Unknown]
  - Bone pain [Unknown]
  - Tryptase increased [Unknown]
  - Calculus ureteric [Unknown]
  - Hydronephrosis [Unknown]
  - Osteochondrosis [Unknown]
  - Sleep apnoea syndrome [Unknown]
  - Sinusitis [Unknown]
  - Neck pain [Unknown]
  - Odynophagia [Unknown]
  - Cardiac arrest [Unknown]
  - Oropharyngeal pain [Unknown]
  - Bone disorder [Unknown]
  - Arthritis [Unknown]
  - Fistula discharge [Unknown]
  - Skin lesion [Unknown]
  - Anxiety disorder [Unknown]
  - Osteoporosis [Unknown]
  - Flank pain [Unknown]
  - Lordosis [Unknown]
  - Asthma [Unknown]
  - Tympanic membrane perforation [Unknown]
  - Cardiomegaly [Unknown]
  - Withdrawal syndrome [Unknown]
  - Leukaemia [Unknown]
  - Upper respiratory tract infection [Unknown]
  - Hypoglycaemia [Unknown]
  - Large intestine polyp [Unknown]
  - Costochondritis [Unknown]
  - Kyphosis [Unknown]
  - Diarrhoea [Unknown]
  - Purulent discharge [Unknown]
  - Bladder dysfunction [Unknown]
  - Abscess neck [Unknown]
  - Wound infection [Unknown]
  - Swelling face [Unknown]
  - Gingival pain [Unknown]
  - Pathological fracture [Unknown]
  - Melaena [Unknown]
  - Bile duct stone [Unknown]
  - Gingival swelling [Unknown]
  - Gingival ulceration [Unknown]
  - Mastoiditis [Unknown]
  - Haemorrhoids [Unknown]
  - Atelectasis [Unknown]
  - Herpes zoster [Unknown]
  - Restless legs syndrome [Unknown]
  - Ovarian cyst [Unknown]
  - Thyroid cyst [Unknown]
  - Hot flush [Unknown]
  - Jaw fracture [Unknown]
  - Abasia [Unknown]
  - Calculus urinary [Unknown]
  - Bundle branch block left [Unknown]
  - Hepatosplenomegaly [Unknown]
  - Sinus tachycardia [Unknown]
  - Nasal septum perforation [Unknown]
  - Injury [Unknown]
  - Paraesthesia [Unknown]
  - Abdominal pain upper [Unknown]
  - Pulmonary fibrosis [Unknown]
  - Local swelling [Unknown]
  - Infection [Unknown]
  - Gastrooesophageal reflux disease [Unknown]
  - Deafness [Unknown]
  - Cystocele [Unknown]
  - Cholecystitis [Unknown]
  - Emphysema [Unknown]
  - Gamma-glutamyltransferase increased [Unknown]
  - Toothache [Unknown]
  - Exostosis [Unknown]
  - Abdominal pain [Unknown]
  - Stress fracture [Unknown]
  - Wound [Unknown]
  - Soft tissue necrosis [Unknown]
  - Tympanosclerosis [Unknown]
  - Device related infection [Unknown]
  - Rales [Unknown]
  - Aortic valve incompetence [Unknown]
  - Thyroid neoplasm [Unknown]
  - Temporomandibular joint syndrome [Unknown]
  - Scar [Unknown]
  - Blood pressure systolic increased [Unknown]
  - Oesophagitis [Unknown]
  - Cerumen impaction [Unknown]
  - Hypoaesthesia [Unknown]
  - Asthenia [Unknown]
  - Bursitis [Unknown]
  - Lung infiltration [Unknown]
  - Vomiting [Unknown]

NARRATIVE: CASE EVENT DATE: 2004
